FAERS Safety Report 17398171 (Version 2)
Quarter: 2020Q2

REPORT INFORMATION
  Report Type: Spontaneous
  Country: US (occurrence: US)
  Receive Date: 20200210
  Receipt Date: 20200403
  Transmission Date: 20200713
  Serious: Yes (Hospitalization, Other)
  Sender: FDA-Public Use
  Company Number: US-PFIZER INC-2016101921

PATIENT
  Age: 60 Year
  Sex: Female
  Weight: 91 kg

DRUGS (27)
  1. LYRICA [Suspect]
     Active Substance: PREGABALIN
     Indication: DIABETIC NEUROPATHY
     Dosage: 75 MG, 2X/DAY
     Route: 048
  2. LYRICA [Suspect]
     Active Substance: PREGABALIN
     Indication: TOXIC NEUROPATHY
  3. LYRICA [Suspect]
     Active Substance: PREGABALIN
     Indication: MYALGIA
  4. LYRICA [Suspect]
     Active Substance: PREGABALIN
     Indication: FIBROMYALGIA
  5. NEURIN [Concomitant]
     Active Substance: CYANOCOBALAMIN
     Dosage: 100 MG, UNK
     Dates: end: 20200115
  6. FENOFIBRATE. [Concomitant]
     Active Substance: FENOFIBRATE
     Dosage: 145 MG, 1X/DAY
  7. VITAMIN C [Concomitant]
     Active Substance: ASCORBIC ACID
     Dosage: UNK
  8. LISINOPRIL. [Concomitant]
     Active Substance: LISINOPRIL
     Dosage: 10 MG, 1X/DAY
     Dates: start: 20000501
  9. CITRAM [Concomitant]
     Active Substance: ESCITALOPRAM OXALATE
     Dosage: 50 MG, UNK
     Dates: start: 20000101
  10. DETROL [Concomitant]
     Active Substance: TOLTERODINE TARTRATE
     Dosage: 2 MG, UNK
     Dates: end: 20200115
  11. LYRICA [Suspect]
     Active Substance: PREGABALIN
     Indication: MYOSITIS
  12. CELEXA [Concomitant]
     Active Substance: CITALOPRAM HYDROBROMIDE
     Dosage: 20 MG, 1X/DAY
     Dates: start: 20000501
  13. ULTRAM [Concomitant]
     Active Substance: TRAMADOL HYDROCHLORIDE
     Dosage: UNK, AS NEEDED (1-2 TABLETS AS NEEDED EVERY 6 HOURS)
     Dates: end: 20200115
  14. CYCLOBENZAPRINE. [Concomitant]
     Active Substance: CYCLOBENZAPRINE
     Dosage: 10 MG, UNK
     Dates: start: 20191130
  15. GLUCOPHAGE [Concomitant]
     Active Substance: METFORMIN HYDROCHLORIDE
     Dosage: 500 MG, 2X/DAY
     Dates: start: 20000501
  16. FLEXERIL [Concomitant]
     Active Substance: CYCLOBENZAPRINE HYDROCHLORIDE
     Dosage: 10 MG, UNK
  17. VITAMIN D3 [Concomitant]
     Active Substance: CHOLECALCIFEROL
     Dosage: UNK
  18. CALCIUM MAGNESIUM ZINC PLUS VITAMIN D [Concomitant]
     Dosage: UNK, 2X/DAY
  19. CINNAMON. [Concomitant]
     Active Substance: CINNAMON
     Dosage: 500 MG, 2X/DAY
  20. SYNTHROID [Concomitant]
     Active Substance: LEVOTHYROXINE SODIUM
     Dosage: 150 UG, 1X/DAY
     Dates: start: 20000510
  21. ESTRACE [Concomitant]
     Active Substance: ESTRADIOL
     Dosage: 1 MG, 1X/DAY
  22. TRAZODONE [Concomitant]
     Active Substance: TRAZODONE HYDROCHLORIDE
     Dosage: 50 MG, AS NEEDED (1 TO 2 TABLET PER DAY AS NEEDED)
     Dates: start: 20000501
  23. CALCIUM [Concomitant]
     Active Substance: CALCIUM
     Dosage: UNK
  24. ALPHA LIPOIC ACID [Concomitant]
     Active Substance: .ALPHA.-LIPOIC ACID
     Dosage: 200 MG, 2X/DAY
     Dates: start: 20200115
  25. OXYBUTYNIN CHLORIDE. [Concomitant]
     Active Substance: OXYBUTYNIN CHLORIDE
     Dosage: 5 MG, 1X/DAY
     Dates: end: 20191127
  26. CLEARLAX [Concomitant]
     Active Substance: POLYETHYLENE GLYCOL 3350
     Dosage: UNK, 1X/DAY
     Dates: start: 20191201
  27. LYRICA [Suspect]
     Active Substance: PREGABALIN
     Indication: MONONEURITIS
     Dosage: 100 MG, 3X/DAY
     Route: 048
     Dates: start: 20000501

REACTIONS (3)
  - Colon injury [Not Recovered/Not Resolved]
  - Sepsis [Not Recovered/Not Resolved]
  - Ovarian neoplasm [Not Recovered/Not Resolved]
